FAERS Safety Report 9196142 (Version 2)
Quarter: 2013Q2

REPORT INFORMATION
  Report Type: Spontaneous
  Country: US (occurrence: US)
  Receive Date: 20130328
  Receipt Date: 20130430
  Transmission Date: 20140414
  Serious: Yes (Hospitalization, Other)
  Sender: FDA-Public Use
  Company Number: US-JNJFOC-20130310229

PATIENT
  Age: 79 Year
  Sex: Male
  Weight: 79.38 kg

DRUGS (7)
  1. ZYTIGA [Suspect]
     Indication: PROSTATE CANCER STAGE IV
     Dosage: 1000 MG (250 MG TABLET/ 4 TIMES A DAY)
     Route: 048
     Dates: start: 2011
  2. ZOMETA [Suspect]
     Indication: BONE DISORDER
     Route: 042
     Dates: start: 20130123
  3. PREDNISONE [Concomitant]
     Indication: PRODUCT USED FOR UNKNOWN INDICATION
     Route: 048
  4. METFORMIN [Concomitant]
     Indication: DIABETES MELLITUS
     Route: 048
  5. PRILOSEC [Concomitant]
     Indication: GASTROOESOPHAGEAL REFLUX DISEASE
     Route: 065
  6. ADVIL [Concomitant]
     Indication: PAIN
     Route: 048
  7. IMODIUM [Concomitant]
     Indication: DIARRHOEA
     Route: 048

REACTIONS (10)
  - Diabetes mellitus [Not Recovered/Not Resolved]
  - Blood count abnormal [Unknown]
  - Blood magnesium decreased [Unknown]
  - Blood potassium decreased [Unknown]
  - Asthenia [Recovered/Resolved]
  - Delirium [Recovered/Resolved]
  - Vomiting [Recovered/Resolved]
  - Diarrhoea [Not Recovered/Not Resolved]
  - Cystitis [Unknown]
  - Night sweats [Not Recovered/Not Resolved]
